FAERS Safety Report 9224618 (Version 1)
Quarter: 2013Q2

REPORT INFORMATION
  Report Type: Spontaneous
  Country: US (occurrence: None)
  Receive Date: 20130411
  Receipt Date: 20130411
  Transmission Date: 20140414
  Serious: Yes (Hospitalization)
  Sender: FDA-Public Use
  Company Number: None

PATIENT
  Age: 86 Year
  Sex: Female
  Weight: 51 kg

DRUGS (19)
  1. COUMADIN [Suspect]
     Indication: ATRIAL FIBRILLATION
     Dosage: 4MG DAILY PO
     Route: 048
  2. COUMADIN [Suspect]
     Indication: POSTOPERATIVE THROMBOSIS
     Dosage: 4MG DAILY PO
     Route: 048
  3. COUMADIN [Suspect]
     Indication: HIP SURGERY
     Dosage: 4MG DAILY PO
     Route: 048
  4. BACTRIM [Suspect]
     Indication: DECUBITUS ULCER
     Dosage: PO
     Route: 048
  5. PACERONE [Concomitant]
  6. OMEPRAZOLE [Concomitant]
  7. DEPLIN [Concomitant]
  8. LISINOPRIL [Concomitant]
  9. NEURONTIN [Concomitant]
  10. PAXIL [Concomitant]
  11. COLACE [Concomitant]
  12. REMICADE [Concomitant]
  13. TYLENOL [Concomitant]
  14. CLORAZEPATE [Concomitant]
  15. FLONASE [Concomitant]
  16. NTG [Concomitant]
  17. MOM [Concomitant]
  18. SYSTANE [Concomitant]
  19. CLINDAMYCIN [Concomitant]

REACTIONS (3)
  - International normalised ratio increased [None]
  - Drug interaction [None]
  - Decubitus ulcer [None]
